FAERS Safety Report 5026117-9 (Version None)
Quarter: 2006Q2

REPORT INFORMATION
  Report Type: 
  Country: None (occurrence: None)
  Receive Date: 20060614
  Receipt Date: 20060524
  Transmission Date: 20061013
  Serious: Yes (Other)
  Sender: FDA-Public Use
  Company Number: FR-BRISTOL-MYERS SQUIBB COMPANY-13390497

PATIENT
  Age: 52 Year
  Sex: Female
  Weight: 49 kg

DRUGS (5)
  1. SUSTIVA [Suspect]
     Indication: HIV INFECTION
     Route: 048
     Dates: start: 20060501, end: 20060502
  2. VIDEX [Concomitant]
     Dates: start: 20060501
  3. VIREAD [Concomitant]
     Dates: start: 20060501
  4. NORVIR [Concomitant]
     Dates: start: 20060501
  5. INVIRASE [Concomitant]
     Dates: start: 20060501

REACTIONS (13)
  - ABDOMINAL PAIN [None]
  - CRYING [None]
  - DELIRIUM [None]
  - FEELING COLD [None]
  - HALLUCINATION [None]
  - HEADACHE [None]
  - HOT FLUSH [None]
  - HYPERHIDROSIS [None]
  - INAPPROPRIATE AFFECT [None]
  - NECK PAIN [None]
  - PALPITATIONS [None]
  - PARAESTHESIA [None]
  - VERTIGO [None]
